FAERS Safety Report 5253691-X (Version None)
Quarter: 2007Q1

REPORT INFORMATION
  Report Type: 
  Country: None (occurrence: None)
  Receive Date: 20061201
  Receipt Date: 20060804
  Transmission Date: 20070707
  Serious: No
  Sender: FDA-Public Use
  Company Number: 2006PV018823

PATIENT
  Age: 44 Year
  Sex: Female
  Weight: 99.7913 kg

DRUGS (4)
  1. BYETTA [Suspect]
     Indication: DIABETES MELLITUS INSULIN-DEPENDENT
     Dosage: 5 MCG;BID;SC
     Route: 058
     Dates: start: 20060715
  2. HUMULIN 70/30 [Concomitant]
  3. METOPROLOL SUCCINATE [Concomitant]
  4. NEXIUM [Concomitant]

REACTIONS (4)
  - DYSPEPSIA [None]
  - GINGIVITIS [None]
  - NAUSEA [None]
  - VOMITING [None]
